FAERS Safety Report 25897967 (Version 1)
Quarter: 2025Q4

REPORT INFORMATION
  Report Type: Spontaneous
  Country: US (occurrence: US)
  Receive Date: 20251008
  Receipt Date: 20251008
  Transmission Date: 20260117
  Serious: Yes (Other)
  Sender: ABBVIE
  Company Number: US-ABBVIE-6490057

PATIENT
  Age: 77 Year
  Sex: Male

DRUGS (3)
  1. REFRESH TEARS [Suspect]
     Active Substance: CARBOXYMETHYLCELLULOSE SODIUM
     Indication: Product used for unknown indication
     Dosage: ROA: OPHTHALMIC
     Route: 065
  2. REFRESH PLUS [Suspect]
     Active Substance: CARBOXYMETHYLCELLULOSE SODIUM
     Indication: Product used for unknown indication
     Dosage: PRESERVATIVE FREE, ROA: OPHTHALMIC
     Route: 065
  3. REFRESH CLASSIC [Suspect]
     Active Substance: POLYVINYL ALCOHOL\POVIDONE
     Indication: Product used for unknown indication
     Dosage: ROA: OPHTHALMIC
     Route: 065
     Dates: start: 202509

REACTIONS (12)
  - Suspected suicide [Unknown]
  - Ophthalmic herpes zoster [Unknown]
  - Joint dislocation [Unknown]
  - Lacrimation increased [Unknown]
  - Burning sensation [Unknown]
  - Visual impairment [Unknown]
  - Product container issue [Unknown]
  - Eye pain [Not Recovered/Not Resolved]
  - Sinusitis [Unknown]
  - Eye inflammation [Unknown]
  - Insomnia [Not Recovered/Not Resolved]
  - Scab [Unknown]

NARRATIVE: CASE EVENT DATE: 20250901
